FAERS Safety Report 11090558 (Version 2)
Quarter: 2015Q2

REPORT INFORMATION
  Report Type: Report from Study
  Country: US (occurrence: US)
  Receive Date: 20150505
  Receipt Date: 20150619
  Transmission Date: 20150821
  Serious: Yes (Other)
  Sender: FDA-Public Use
  Company Number: PHEH2015US002332

PATIENT
  Age: 30 Year
  Sex: Female

DRUGS (5)
  1. PREVACID [Concomitant]
     Active Substance: LANSOPRAZOLE
     Indication: PRODUCT USED FOR UNKNOWN INDICATION
     Dosage: UNK UNK, PRN
     Route: 065
  2. VITAMIN D [Concomitant]
     Active Substance: CHOLECALCIFEROL
     Indication: PRODUCT USED FOR UNKNOWN INDICATION
     Route: 065
  3. CALCIUM [Concomitant]
     Active Substance: CALCIUM
     Indication: PRODUCT USED FOR UNKNOWN INDICATION
     Route: 065
  4. LAMICTAL [Concomitant]
     Active Substance: LAMOTRIGINE
     Indication: PRODUCT USED FOR UNKNOWN INDICATION
     Route: 065
  5. AFINITOR [Suspect]
     Active Substance: EVEROLIMUS
     Indication: ANGIOMYOLIPOMA
     Route: 048
     Dates: start: 20140717

REACTIONS (7)
  - Fall [Unknown]
  - Gastrooesophageal reflux disease [Recovered/Resolved]
  - Vomiting [Recovered/Resolved]
  - Sinusitis [Recovered/Resolved]
  - Folliculitis [Recovered/Resolved]
  - Hand fracture [Unknown]
  - Head injury [Unknown]

NARRATIVE: CASE EVENT DATE: 20150313
